FAERS Safety Report 25299883 (Version 1)
Quarter: 2025Q2

REPORT INFORMATION
  Report Type: Spontaneous
  Country: US (occurrence: US)
  Receive Date: 20250512
  Receipt Date: 20250512
  Transmission Date: 20250716
  Serious: No
  Sender: ABBVIE
  Company Number: US-ABBVIE-6269837

PATIENT
  Sex: Female

DRUGS (1)
  1. LILETTA [Suspect]
     Active Substance: LEVONORGESTREL
     Indication: Product used for unknown indication
     Route: 015
     Dates: start: 20210528

REACTIONS (4)
  - Device placement issue [Unknown]
  - Abdominal pain [Unknown]
  - Abdominal distension [Unknown]
  - Device issue [Unknown]

NARRATIVE: CASE EVENT DATE: 20250401
